FAERS Safety Report 12765154 (Version 1)
Quarter: 2016Q3

REPORT INFORMATION
  Report Type: Spontaneous
  Country: US (occurrence: US)
  Receive Date: 20160921
  Receipt Date: 20160921
  Transmission Date: 20161109
  Serious: No
  Sender: FDA-Public Use
  Company Number: US-TEVA-687876ACC

PATIENT
  Age: 29 Year
  Sex: Female
  Weight: 73.55 kg

DRUGS (1)
  1. PARAGARD T 380A [Suspect]
     Active Substance: COPPER
     Indication: CONTRACEPTION
     Dates: start: 20160817, end: 20160817

REACTIONS (2)
  - Pain [Unknown]
  - Uterine tenderness [Unknown]

NARRATIVE: CASE EVENT DATE: 20160817
